FAERS Safety Report 5119016-5 (Version None)
Quarter: 2006Q3

REPORT INFORMATION
  Report Type: 
  Country: None (occurrence: None)
  Receive Date: 20060927
  Receipt Date: 20060922
  Transmission Date: 20061208
  Serious: No
  Sender: FDA-Public Use
  Company Number: 220772

PATIENT
  Age: 12 Year
  Sex: Male

DRUGS (9)
  1. NUTROPIN AQ [Suspect]
     Indication: GROWTH HORMONE DEFICIENCY
     Dosage: 1.6 MG, 6/WEEK, SUBCUTANEOUS
     Route: 058
     Dates: start: 20040614
  2. CLARINEX [Concomitant]
  3. LEVOTHYROXINE SODIUM [Concomitant]
  4. ADVAIR DISKUS (FLUTICASONE PROPIONATE, SALMETEROL XINAFOATE) [Concomitant]
  5. RHINOCORT [Concomitant]
  6. CYPROHEPTADINE (CYPROHEPTADINE HYDROCHLORIDE) [Concomitant]
  7. PATANOL [Concomitant]
  8. ALBUTEROL NEBULIZER (ALBUTEROL/ALBUTEROL SULFATE) [Concomitant]
  9. BISOPROLOL FUMARATE [Concomitant]

REACTIONS (1)
  - AORTIC VALVE INCOMPETENCE [None]
